FAERS Safety Report 4391579-7 (Version None)
Quarter: 2004Q3

REPORT INFORMATION
  Report Type: 
  Country: None (occurrence: None)
  Receive Date: 20040702
  Receipt Date: 20040224
  Transmission Date: 20050211
  Serious: No
  Sender: FDA-Public Use
  Company Number: 2004UW03264

PATIENT
  Sex: Male

DRUGS (1)
  1. CRESTOR [Suspect]
     Dates: start: 20040201, end: 20040201

REACTIONS (3)
  - ASTHENIA [None]
  - BURNING SENSATION [None]
  - HYPERSENSITIVITY [None]
